FAERS Safety Report 17711238 (Version 5)
Quarter: 2021Q4

REPORT INFORMATION
  Report Type: Spontaneous
  Country: US (occurrence: US)
  Receive Date: 20200427
  Receipt Date: 20211029
  Transmission Date: 20220303
  Serious: No
  Sender: FDA-Public Use
  Company Number: US-PFIZER INC-2018488970

PATIENT
  Age: 57 Year
  Sex: Male

DRUGS (4)
  1. LYRICA [Suspect]
     Active Substance: PREGABALIN
     Indication: Epilepsy
     Dosage: 300 MG, DAILY (1 CAPSULE EVERY MORNING AND 1 CAPSULE EVERY EVENING)
     Route: 048
  2. LYRICA [Suspect]
     Active Substance: PREGABALIN
     Indication: Muscle spasms
     Dosage: 450 MG, DAILY(1 CAPSULE EVERY MORNING AND 2 CAPSULES EVERY EVENING)
     Route: 048
  3. LYRICA [Suspect]
     Active Substance: PREGABALIN
     Indication: Seizure
     Dosage: 450 MG, DAILY(1 CAPSULE QAM (EVERY MORNING) AND 2 CAPSULES QHS (EVERY NIGHT AT BEDTIME))
     Route: 048
  4. LYRICA [Suspect]
     Active Substance: PREGABALIN
     Indication: Restless legs syndrome

REACTIONS (2)
  - Feeling abnormal [Unknown]
  - Therapeutic response unexpected [Unknown]
